FAERS Safety Report 25623927 (Version 2)
Quarter: 2025Q3

REPORT INFORMATION
  Report Type: Spontaneous
  Country: US (occurrence: US)
  Receive Date: 20250730
  Receipt Date: 20250911
  Transmission Date: 20251020
  Serious: No
  Sender: SANDOZ
  Company Number: US-SANDOZ-SDZ2025US052877

PATIENT
  Age: 31 Year
  Sex: Male

DRUGS (2)
  1. HYRIMOZ [Suspect]
     Active Substance: ADALIMUMAB-ADAZ
     Indication: Product used for unknown indication
     Dosage: 40 MG, Q2W (HYRIMOZ 40MG/0.4ML)
     Route: 065
     Dates: start: 20250714, end: 20250714
  2. HYRIMOZ [Suspect]
     Active Substance: ADALIMUMAB-ADAZ
     Indication: Product used for unknown indication
     Dosage: 40 MG, Q2W (HYRIMOZ 40MG/0.4ML)
     Route: 065
     Dates: start: 20250714, end: 20250714

REACTIONS (2)
  - Circumstance or information capable of leading to device use error [Unknown]
  - Device delivery system issue [Unknown]

NARRATIVE: CASE EVENT DATE: 20250714
